FAERS Safety Report 6253659-0 (Version None)
Quarter: 2009Q3

REPORT INFORMATION
  Report Type: 
  Country: None (occurrence: None)
  Receive Date: 20090701
  Receipt Date: 20090617
  Transmission Date: 20100115
  Serious: Yes (Other)
  Sender: FDA-Public Use
  Company Number: JP-GENENTECH-273990

PATIENT
  Sex: Female
  Weight: 61.4 kg

DRUGS (11)
  1. AVASTIN [Suspect]
     Indication: COLON CANCER METASTATIC
     Dosage: 5 MG/KG, Q2W
     Route: 041
     Dates: start: 20080528
  2. KYTRIL [Suspect]
     Indication: PROPHYLAXIS OF NAUSEA AND VOMITING
     Dosage: 3 MG, QD
     Route: 041
     Dates: start: 20080528
  3. IRINOTECAN HYDROCHLORIDE [Suspect]
     Indication: COLON CANCER METASTATIC
     Dosage: 240 MG, Q2W
     Route: 041
     Dates: start: 20080528
  4. FLUOROURACIL [Suspect]
     Indication: COLON CANCER METASTATIC
     Dosage: 4450 MG, Q2W
     Route: 041
     Dates: start: 20080528
  5. CALCIUM LEVOFOLINATE [Suspect]
     Indication: COLON CANCER METASTATIC
     Dosage: 300 MG, Q2W
     Route: 041
     Dates: start: 20080528
  6. GASTER [Concomitant]
     Indication: DRUG USE FOR UNKNOWN INDICATION
  7. MAGMITT [Concomitant]
     Indication: DRUG USE FOR UNKNOWN INDICATION
  8. DEXAMETHASONE SODIUM PHOSPHATE [Concomitant]
     Indication: DRUG USE FOR UNKNOWN INDICATION
  9. NAUZELIN [Concomitant]
     Indication: DRUG USE FOR UNKNOWN INDICATION
  10. OXYCONTIN [Concomitant]
     Indication: DRUG USE FOR UNKNOWN INDICATION
  11. RILMAZAFONE HYDROCHLORIDE [Concomitant]
     Indication: DRUG USE FOR UNKNOWN INDICATION
     Dosage: UNK
     Dates: start: 20080529, end: 20080606

REACTIONS (1)
  - HEPATITIS [None]
